FAERS Safety Report 21944262 (Version 1)
Quarter: 2023Q1

REPORT INFORMATION
  Report Type: Report from Study
  Country: CA (occurrence: CA)
  Receive Date: 20230202
  Receipt Date: 20230202
  Transmission Date: 20230418
  Serious: Yes (Other)
  Sender: FDA-Public Use
  Company Number: CA-ABBVIE-4291028

PATIENT
  Sex: Male

DRUGS (10)
  1. LUPRON DEPOT [Suspect]
     Active Substance: LEUPROLIDE ACETATE
     Indication: Prostate cancer
     Route: 030
     Dates: start: 20200506, end: 202301
  2. BICALUTAMIDE [Concomitant]
     Active Substance: BICALUTAMIDE
     Indication: Product used for unknown indication
  3. Teva Cyproterone [Concomitant]
     Indication: Product used for unknown indication
  4. Teva Bromazepam [Concomitant]
     Indication: Product used for unknown indication
  5. CITALOPRAM [Concomitant]
     Active Substance: CITALOPRAM HYDROBROMIDE
     Indication: Product used for unknown indication
  6. ACETAMINOPHEN [Concomitant]
     Active Substance: ACETAMINOPHEN
     Indication: Product used for unknown indication
  7. TEVA ZOLMITRIPTAN [Concomitant]
     Indication: Product used for unknown indication
  8. JAMP-PANTOPRAZOLE [Concomitant]
     Indication: Product used for unknown indication
  9. RATIO-EMTEC [Concomitant]
     Indication: Product used for unknown indication
  10. PMS CLONAZEPAM [Concomitant]
     Indication: Product used for unknown indication

REACTIONS (2)
  - Metastases to bone [Unknown]
  - Terminal state [Unknown]
